FAERS Safety Report 4984004-6 (Version None)
Quarter: 2006Q1

REPORT INFORMATION
  Report Type: 
  Country: None (occurrence: None)
  Receive Date: 20060301
  Receipt Date: 20051107
  Transmission Date: 20060701
  Serious: No
  Sender: FDA-Public Use
  Company Number: S05-USA-04860-01

PATIENT
  Age: 92 Year
  Sex: Male

DRUGS (13)
  1. NAMENDA [Suspect]
     Indication: DEMENTIA
     Dosage: 5 MG BID PO
     Route: 048
     Dates: start: 20051031, end: 20051106
  2. NAMENDA [Suspect]
     Indication: DEMENTIA
     Dosage: 15 MG QD PO
     Route: 048
     Dates: start: 20051107
  3. NAMENDA [Suspect]
     Indication: DEMENTIA
     Dosage: 5 MG QD PO
     Route: 048
     Dates: start: 20051024, end: 20051030
  4. LOVASTATIN [Concomitant]
  5. COUMADIN [Concomitant]
  6. ISOSORBIDE [Concomitant]
  7. DIGOXIN [Concomitant]
  8. PROPRANOLOL [Concomitant]
  9. FOLIC ACID [Concomitant]
  10. CENTRUM [Concomitant]
  11. CALTRATE (CALCIUM CARBONATE) [Concomitant]
  12. VITAMIN E [Concomitant]
  13. VITAMIN C (VITAMIN C) [Concomitant]

REACTIONS (2)
  - OEDEMA PERIPHERAL [None]
  - RASH [None]
